FAERS Safety Report 18556448 (Version 3)
Quarter: 2021Q2

REPORT INFORMATION
  Report Type: Report from Study
  Country: BR (occurrence: BR)
  Receive Date: 20201128
  Receipt Date: 20210417
  Transmission Date: 20210717
  Serious: Yes (Other)
  Sender: FDA-Public Use
  Company Number: NVSC2020BR312191

PATIENT
  Sex: Female

DRUGS (4)
  1. COSENTYX [Suspect]
     Active Substance: SECUKINUMAB
     Dosage: 300 MG, QMO (2 PENS OF 150 MG)
     Route: 058
     Dates: start: 20200912
  2. METHOTREXATE. [Concomitant]
     Active Substance: METHOTREXATE
     Indication: PRODUCT USED FOR UNKNOWN INDICATION
     Dosage: UNK
     Route: 065
  3. COSENTYX [Suspect]
     Active Substance: SECUKINUMAB
     Dosage: 300 MG, QMO (2 PENS OF 150 MG)
     Route: 058
     Dates: start: 20201030
  4. COSENTYX [Suspect]
     Active Substance: SECUKINUMAB
     Indication: PSORIATIC ARTHROPATHY
     Dosage: 300 MG, QMO (2 PENS OF 150 MG)
     Route: 058
     Dates: start: 20181111, end: 20201030

REACTIONS (14)
  - Deafness unilateral [Unknown]
  - Pain [Unknown]
  - Sinusitis [Unknown]
  - Rash macular [Not Recovered/Not Resolved]
  - Psoriasis [Not Recovered/Not Resolved]
  - Joint swelling [Not Recovered/Not Resolved]
  - Arthritis [Unknown]
  - Injury [Unknown]
  - Arthralgia [Unknown]
  - Candida infection [Recovered/Resolved]
  - Liver disorder [Unknown]
  - Inappropriate schedule of product administration [Unknown]
  - Ear congestion [Unknown]
  - Drug ineffective [Unknown]
